FAERS Safety Report 14978599 (Version 1)
Quarter: 2018Q2

REPORT INFORMATION
  Report Type: Spontaneous
  Country: US (occurrence: US)
  Receive Date: 20180515
  Receipt Date: 20180515
  Transmission Date: 20180711
  Serious: No
  Sender: FDA-Public Use
  Company Number: None

PATIENT
  Age: 71 Year
  Sex: Female

DRUGS (1)
  1. FORTEO [Suspect]
     Active Substance: TERIPARATIDE
     Indication: OSTEOPOROSIS
     Route: 058
     Dates: start: 20180126

REACTIONS (5)
  - Muscle spasms [None]
  - Arthritis [None]
  - Bronchitis [None]
  - Loss of personal independence in daily activities [None]
  - Hypersensitivity [None]

NARRATIVE: CASE EVENT DATE: 20180301
